FAERS Safety Report 5340748-8 (Version None)
Quarter: 2007Q2

REPORT INFORMATION
  Report Type: 
  Country: None (occurrence: None)
  Receive Date: 20070405
  Receipt Date: 20070105
  Transmission Date: 20071010
  Serious: No
  Sender: FDA-Public Use
  Company Number: US200701001261

PATIENT
  Age: 20 Year
  Sex: Female

DRUGS (2)
  1. SYMBYAX [Suspect]
     Dosage: D/F
  2. CYMBALTA [Suspect]
     Dosage: 60 MG

REACTIONS (2)
  - DRUG INEFFECTIVE [None]
  - OEDEMA PERIPHERAL [None]
